FAERS Safety Report 11654539 (Version 1)
Quarter: 2015Q4

REPORT INFORMATION
  Report Type: Spontaneous
  Country: AU (occurrence: AU)
  Receive Date: 20151023
  Receipt Date: 20151023
  Transmission Date: 20160304
  Serious: Yes (Death, Hospitalization, Other)
  Sender: FDA-Public Use
  Company Number: AU-OCTA-GAM29915AU

PATIENT
  Age: 66 Year
  Sex: Male
  Weight: 65 kg

DRUGS (3)
  1. OXYGEN. [Concomitant]
     Active Substance: OXYGEN
     Indication: PRODUCT USED FOR UNKNOWN INDICATION
     Dates: start: 20150506, end: 201505
  2. VANCOMYCIN [Concomitant]
     Active Substance: VANCOMYCIN
     Indication: STAPHYLOCOCCAL INFECTION
     Dates: start: 201505, end: 201505
  3. OCTAGAM IMMUNE GLOBULIN (HUMAN) [Suspect]
     Active Substance: HUMAN IMMUNOGLOBULIN G
     Indication: GUILLAIN-BARRE SYNDROME
     Dosage: IN TOTAL: 3 INFUSIONS
     Route: 042
     Dates: start: 20150506, end: 201505

REACTIONS (4)
  - Septic shock [Fatal]
  - Hypotension [Unknown]
  - Multi-organ failure [Fatal]
  - Hypoxia [Unknown]

NARRATIVE: CASE EVENT DATE: 201505
